FAERS Safety Report 23780419 (Version 2)
Quarter: 2024Q2

REPORT INFORMATION
  Report Type: Spontaneous
  Country: AT (occurrence: AT)
  Receive Date: 20240424
  Receipt Date: 20240507
  Transmission Date: 20240716
  Serious: No
  Sender: FDA-Public Use
  Company Number: AT-BoehringerIngelheim-2024-BI-023929

PATIENT
  Sex: Male

DRUGS (11)
  1. JARDIANCE [Suspect]
     Active Substance: EMPAGLIFLOZIN
     Indication: Cardiac failure
     Dates: start: 202301
  2. JARDIANCE [Suspect]
     Active Substance: EMPAGLIFLOZIN
     Dates: start: 202302
  3. XARELTO [Concomitant]
     Active Substance: RIVAROXABAN
     Indication: Atrial fibrillation
  4. Concor 5 [Concomitant]
     Indication: Product used for unknown indication
     Dosage: 2 X ? TBL
  5. Pantoloc 40 [Concomitant]
     Indication: Product used for unknown indication
  6. TORSEMIDE [Concomitant]
     Active Substance: TORSEMIDE
     Indication: Product used for unknown indication
  7. REPATHA [Concomitant]
     Active Substance: EVOLOCUMAB
     Indication: Product used for unknown indication
  8. Entresto 49/51 [Concomitant]
     Indication: Product used for unknown indication
     Dosage: 49/5
  9. ALLOPURINOL [Concomitant]
     Active Substance: ALLOPURINOL
     Indication: Product used for unknown indication
  10. Lanitop 0.1 [Concomitant]
     Indication: Product used for unknown indication
  11. Fermed IV [Concomitant]
     Indication: Product used for unknown indication
     Route: 042

REACTIONS (1)
  - Product use issue [Unknown]
